FAERS Safety Report 7433907-1 (Version None)
Quarter: 2011Q2

REPORT INFORMATION
  Report Type: 
  Country: None (occurrence: None)
  Receive Date: 20110418
  Receipt Date: 20110414
  Transmission Date: 20111010
  Serious: Yes (Hospitalization)
  Sender: FDA-Public Use
  Company Number: SP03129

PATIENT
  Age: 22 Year
  Sex: Female

DRUGS (6)
  1. VISICOL [Suspect]
     Indication: ENDOSCOPY LARGE BOWEL
     Dosage: 50 MG, ORAL
     Route: 048
     Dates: start: 20100819, end: 20100819
  2. MAGNESIUM CITRATE [Concomitant]
  3. MESALAMINE [Concomitant]
  4. CALCITRIOL [Concomitant]
  5. FAMOTIDINE [Concomitant]
  6. PREDNISOLONE [Concomitant]

REACTIONS (6)
  - BLOOD PHOSPHORUS INCREASED [None]
  - ASTHENIA [None]
  - HYPOAESTHESIA [None]
  - BLOOD POTASSIUM DECREASED [None]
  - TETANY [None]
  - NAUSEA [None]
